FAERS Safety Report 4388441-2 (Version None)
Quarter: 2004Q2

REPORT INFORMATION
  Report Type: 
  Country: None (occurrence: None)
  Receive Date: 20040625
  Receipt Date: 20040615
  Transmission Date: 20050107
  Serious: Yes (Death, Life-Threatening)
  Sender: FDA-Public Use
  Company Number: GB-JNJFOC-20040603727

PATIENT
  Age: 54 Year
  Sex: Female

DRUGS (8)
  1. REMICADE [Suspect]
     Indication: RHEUMATOID ARTHRITIS
     Dosage: 200 MG, INTRAVENOUS
     Route: 042
     Dates: start: 20020814, end: 20021101
  2. CO-PROXAMOL (APOREX) [Concomitant]
  3. VIOXX [Concomitant]
  4. PREDNISOLONE [Concomitant]
  5. FOLIC ACID [Concomitant]
  6. METHOTREXATE [Concomitant]
  7. FOSAMAX [Concomitant]
  8. NEFOPAM (NEFOPAM) [Concomitant]

REACTIONS (2)
  - BRONCHOPNEUMONIA [None]
  - NON-HODGKIN'S LYMPHOMA [None]
